FAERS Safety Report 23978206 (Version 2)
Quarter: 2024Q4

REPORT INFORMATION
  Report Type: Spontaneous
  Country: SK (occurrence: SK)
  Receive Date: 20240614
  Receipt Date: 20241122
  Transmission Date: 20250114
  Serious: Yes (Other)
  Sender: TEVA
  Company Number: SK-TEVA-VS-3209631

PATIENT
  Age: 91 Year
  Sex: Female

DRUGS (1)
  1. CYCLOSPORINE [Suspect]
     Active Substance: CYCLOSPORINE
     Indication: Product used for unknown indication
     Dosage: CYCLOSPORIN A, DOSE REFLECTS CONCENTRATION IN SERUM, DOSING WAS 5 M/KG/D, DUE TO RENAL INSUFFICIE...
     Route: 065
     Dates: start: 20220927, end: 202302

REACTIONS (3)
  - Renal failure [Unknown]
  - Neutropenia [Unknown]
  - Infection [Unknown]
